FAERS Safety Report 11442497 (Version 1)
Quarter: 2015Q3

REPORT INFORMATION
  Report Type: Spontaneous
  Country: CN (occurrence: CN)
  Receive Date: 20150901
  Receipt Date: 20150901
  Transmission Date: 20151125
  Serious: Yes (Other)
  Sender: FDA-Public Use
  Company Number: CN-BAXTER-2015BAX047516

PATIENT
  Age: 76 Year
  Sex: Female
  Weight: 43 kg

DRUGS (3)
  1. DEXAMETHASONE SODIUM PHOSPHATE. [Suspect]
     Active Substance: DEXAMETHASONE SODIUM PHOSPHATE
     Indication: LUMBOSACRAL RADICULOPATHY
     Dosage: 120 DROPS PER MINUTE
     Route: 041
     Dates: start: 20150224, end: 20150225
  2. 20% MANNITOL INJECTION [Suspect]
     Active Substance: MANNITOL
     Indication: LUMBOSACRAL RADICULOPATHY
     Dosage: 120 DROPS PER MINUTE
     Route: 041
     Dates: start: 20150224, end: 20150225
  3. 20% MANNITOL INJECTION [Suspect]
     Active Substance: MANNITOL
     Indication: OFF LABEL USE

REACTIONS (2)
  - Chest discomfort [Recovered/Resolved]
  - Palpitations [Recovered/Resolved]

NARRATIVE: CASE EVENT DATE: 20150225
